FAERS Safety Report 9630018 (Version 2)
Quarter: 2013Q4

REPORT INFORMATION
  Report Type: Report from Study
  Country: NL (occurrence: NL)
  Receive Date: 20131017
  Receipt Date: 20131105
  Transmission Date: 20140711
  Serious: Yes (Hospitalization)
  Sender: FDA-Public Use
  Company Number: NL-BRISTOL-MYERS SQUIBB COMPANY-19577154

PATIENT
  Age: 71 Year
  Sex: Male

DRUGS (8)
  1. CETUXIMAB [Suspect]
     Indication: NEOPLASM MALIGNANT
     Dosage: RECENT DOSE -SEP13?UNK-01OCT2013:2000MG
     Route: 042
     Dates: start: 201307, end: 20130925
  2. DOXYCYCLINE [Suspect]
     Dosage: 28AUG2013 -23SEP2013:200MG?23SEP2013 -25SEP2013
     Dates: start: 20130919
  3. PARACETAMOL [Concomitant]
     Dates: start: 20130918
  4. FLUTICASONE [Concomitant]
     Route: 061
     Dates: start: 20130919
  5. UREUM [Concomitant]
     Route: 061
     Dates: start: 20130913
  6. OXYCODONE [Concomitant]
     Dates: start: 20130913, end: 20130925
  7. OXYNORM [Concomitant]
     Dates: start: 20130925
  8. MAGNESIUM OXIDE [Concomitant]
     Dates: start: 20130925, end: 20131001

REACTIONS (2)
  - Cholestasis [Not Recovered/Not Resolved]
  - Leukocytosis [Recovered/Resolved with Sequelae]
